FAERS Safety Report 7086899-1 (Version None)
Quarter: 2010Q4

REPORT INFORMATION
  Report Type: 
  Country: None (occurrence: None)
  Receive Date: 20101106
  Receipt Date: 20101015
  Transmission Date: 20110411
  Serious: Yes (Other)
  Sender: FDA-Public Use
  Company Number: HQWYE403928MAR05

PATIENT
  Sex: Female

DRUGS (1)
  1. PREMARIN [Suspect]

REACTIONS (1)
  - CEREBROVASCULAR ACCIDENT [None]
